FAERS Safety Report 9517777 (Version 1)
Quarter: 2013Q3

REPORT INFORMATION
  Report Type: Spontaneous
  Country: AU (occurrence: AU)
  Receive Date: 20130912
  Receipt Date: 20130912
  Transmission Date: 20140515
  Serious: Yes (Other)
  Sender: FDA-Public Use
  Company Number: AU-JNJFOC-20130901417

PATIENT
  Age: 23 Year
  Sex: Male
  Weight: 80 kg

DRUGS (1)
  1. CONCERTA [Suspect]
     Indication: PRODUCT USED FOR UNKNOWN INDICATION
     Dosage: 27MG-36 MG DEPENDING ON THE DAY HE CHOOSE.
     Route: 048

REACTIONS (3)
  - Weight decreased [Unknown]
  - Heart rate increased [Recovered/Resolved]
  - Inappropriate schedule of drug administration [Unknown]
